FAERS Safety Report 12960513 (Version 1)
Quarter: 2016Q4

REPORT INFORMATION
  Report Type: Spontaneous
  Country: ES (occurrence: ES)
  Receive Date: 20161121
  Receipt Date: 20161121
  Transmission Date: 20170207
  Serious: Yes (Hospitalization)
  Sender: FDA-Public Use
  Company Number: ES-IPCA LABORATORIES LIMITED-IPC201611-000950

PATIENT
  Age: 3 Year
  Sex: Male

DRUGS (1)
  1. FUROSEMIDE. [Suspect]
     Active Substance: FUROSEMIDE

REACTIONS (2)
  - Cholelithiasis [Recovered/Resolved]
  - Bile duct obstruction [Recovering/Resolving]
